FAERS Safety Report 9033629 (Version 1)
Quarter: 2013Q1

REPORT INFORMATION
  Report Type: Spontaneous
  Country: US (occurrence: US)
  Receive Date: 20130128
  Receipt Date: 20130128
  Transmission Date: 20140127
  Serious: Yes (Other)
  Sender: FDA-Public Use
  Company Number: US-AMGEN-USASP2012081001

PATIENT
  Age: 75 Year
  Sex: Female

DRUGS (4)
  1. PROLIA [Suspect]
     Indication: OSTEOPOROSIS POSTMENOPAUSAL
     Dosage: 60 MG, Q6MO
     Dates: start: 201111
  2. CALCIUM [Concomitant]
     Dosage: UNK
     Dates: end: 2012
  3. MICARDIS [Concomitant]
     Dosage: UNK
     Dates: end: 2012
  4. LOSARTAN [Concomitant]
     Dosage: UNK
     Dates: start: 2012

REACTIONS (9)
  - Cardiac flutter [Recovering/Resolving]
  - Muscle spasms [Recovering/Resolving]
  - Feeling abnormal [Recovering/Resolving]
  - Arterial occlusive disease [Unknown]
  - Blood cholesterol increased [Unknown]
  - Nasopharyngitis [Unknown]
  - Bronchitis [Unknown]
  - Myalgia [Recovering/Resolving]
  - Blood calcium decreased [Unknown]
